FAERS Safety Report 10313942 (Version 1)
Quarter: 2014Q3

REPORT INFORMATION
  Report Type: Spontaneous
  Country: US (occurrence: None)
  Receive Date: 20140716
  Receipt Date: 20140716
  Transmission Date: 20150326
  Serious: Yes (Hospitalization, Other)
  Sender: FDA-Public Use
  Company Number: AUR-APL-2014-07346

PATIENT
  Age: 56 Year
  Sex: Female
  Weight: 81.6 kg

DRUGS (7)
  1. SYNTHROID [Concomitant]
     Active Substance: LEVOTHYROXINE SODIUM
  2. ASPIRIN (ACETYLSALICYLIC ACID) [Concomitant]
     Active Substance: ASPIRIN
  3. LISINOPRIL. [Suspect]
     Active Substance: LISINOPRIL
     Indication: BLOOD PRESSURE
     Route: 048
     Dates: start: 2013
  4. PLAVIX (CLOPIDOGREL BISULFATE) [Concomitant]
  5. PRILOSEC [Suspect]
     Active Substance: OMEPRAZOLE MAGNESIUM
     Indication: GASTROOESOPHAGEAL REFLUX DISEASE
     Route: 048
     Dates: start: 2008, end: 2008
  6. COUMADIN /00014802/ (WARFARIN SODIUM) [Concomitant]
  7. NEXIUM [Suspect]
     Active Substance: ESOMEPRAZOLE MAGNESIUM
     Indication: GASTROOESOPHAGEAL REFLUX DISEASE
     Route: 048

REACTIONS (16)
  - Gait disturbance [None]
  - Off label use [None]
  - Dyspepsia [None]
  - Muscle spasms [None]
  - Decreased appetite [None]
  - Apnoea [None]
  - Peripheral arterial occlusive disease [None]
  - Peripheral artery thrombosis [None]
  - Intentional product misuse [None]
  - Thrombosis [None]
  - Drug ineffective [None]
  - Chest pain [None]
  - Gastrooesophageal reflux disease [None]
  - Abdominal distension [None]
  - Drug dose omission [None]
  - Oesophageal pain [None]

NARRATIVE: CASE EVENT DATE: 2011
